FAERS Safety Report 4657428-4 (Version None)
Quarter: 2005Q2

REPORT INFORMATION
  Report Type: 
  Country: None (occurrence: None)
  Receive Date: 20050509
  Receipt Date: 20050509
  Transmission Date: 20051028
  Serious: Yes (Hospitalization)
  Sender: FDA-Public Use
  Company Number: None

PATIENT
  Age: 57 Year
  Sex: Male
  Weight: 50 kg

DRUGS (6)
  1. DOCETAXEL [Suspect]
     Indication: NEOPLASM MALIGNANT
     Dosage: 300 MG /M2 DAY 1,8,15 IV
     Route: 042
     Dates: start: 20050226, end: 20050331
  2. IFOSFAMIDE [Suspect]
     Indication: NEOPLASM MALIGNANT
     Dosage: 1000 MG/M2 DAY 1, 8, 15 IV
     Route: 042
     Dates: start: 20050226, end: 20050331
  3. OXYCONTIN [Concomitant]
  4. PERIDEX [Concomitant]
  5. ZOFRAN [Concomitant]
  6. OXYCONTIN HCL [Concomitant]

REACTIONS (10)
  - COLITIS ISCHAEMIC [None]
  - FUNGAL OESOPHAGITIS [None]
  - HAEMOGLOBIN DECREASED [None]
  - HAEMORRHAGE [None]
  - LOSS OF CONSCIOUSNESS [None]
  - NEOPLASM PROGRESSION [None]
  - PUPIL FIXED [None]
  - RENAL FAILURE [None]
  - RESUSCITATION [None]
  - RHABDOMYOLYSIS [None]
